FAERS Safety Report 6178504-3 (Version None)
Quarter: 2009Q2

REPORT INFORMATION
  Report Type: 
  Country: None (occurrence: None)
  Receive Date: 20090504
  Receipt Date: 20090424
  Transmission Date: 20091009
  Serious: Yes (Other)
  Sender: FDA-Public Use
  Company Number: US-AMGEN-QUU344303

PATIENT
  Sex: Female

DRUGS (1)
  1. ENBREL [Suspect]
     Indication: DRUG USE FOR UNKNOWN INDICATION

REACTIONS (4)
  - ANTIPHOSPHOLIPID ANTIBODIES [None]
  - DRUG EXPOSURE DURING PREGNANCY [None]
  - PLATELET COUNT DECREASED [None]
  - PREGNANCY [None]
